FAERS Safety Report 7332169-3 (Version None)
Quarter: 2011Q1

REPORT INFORMATION
  Report Type: 
  Country: None (occurrence: None)
  Receive Date: 20110222
  Receipt Date: 20110203
  Transmission Date: 20110831
  Serious: Yes (Hospitalization)
  Sender: FDA-Public Use
  Company Number: CIO11002311

PATIENT
  Age: 33 Year
  Sex: Male

DRUGS (9)
  1. TYLENOL  /00020001/ (PARACETAMOL) [Suspect]
     Dosage: , ORAL
     Route: 048
  2. PEPTO-BISMOL (BISMUTH SUBSALICYLATE) [Concomitant]
  3. NYQUIL ADULT, VERSION/FLAVOR UNKNOWN(ETHANOL 10-25 %, DEXTROMETHORPHAN [Suspect]
     Indication: VOMITING
     Dosage: , ORAL
     Route: 048
  4. NYQUIL ADULT, VERSION/FLAVOR UNKNOWN(ETHANOL 10-25 %, DEXTROMETHORPHAN [Suspect]
     Indication: PYREXIA
     Dosage: , ORAL
     Route: 048
  5. NYQUIL ADULT, VERSION/FLAVOR UNKNOWN(ETHANOL 10-25 %, DEXTROMETHORPHAN [Suspect]
     Indication: NAUSEA
     Dosage: , ORAL
     Route: 048
  6. NYQUIL ADULT, VERSION/FLAVOR UNKNOWN(ETHANOL 10-25 %, DEXTROMETHORPHAN [Suspect]
     Indication: HEADACHE
     Dosage: , ORAL
     Route: 048
  7. NYQUIL ADULT, VERSION/FLAVOR UNKNOWN(ETHANOL 10-25 %, DEXTROMETHORPHAN [Suspect]
     Indication: ABDOMINAL PAIN UPPER
     Dosage: , ORAL
     Route: 048
  8. EXCEDRIN P.M. /01557001/(DIPHENHYDRAMINE CITRATE, PARACETAMOL) [Suspect]
     Indication: NAUSEA
     Dosage: , ORAL
     Route: 048
  9. EXCEDRIN P.M. /01557001/(DIPHENHYDRAMINE CITRATE, PARACETAMOL) [Suspect]
     Indication: VOMITING
     Dosage: , ORAL
     Route: 048

REACTIONS (14)
  - HEPATIC NECROSIS [None]
  - LIVER TENDERNESS [None]
  - HAEMATOCRIT INCREASED [None]
  - HEPATIC CIRRHOSIS [None]
  - RENAL FAILURE ACUTE [None]
  - WHITE BLOOD CELL COUNT DECREASED [None]
  - BLOOD PRESSURE INCREASED [None]
  - BLOOD GLUCOSE INCREASED [None]
  - PROTHROMBIN TIME PROLONGED [None]
  - BIOPSY LIVER ABNORMAL [None]
  - RENAL TUBULAR NECROSIS [None]
  - JAUNDICE [None]
  - HEPATITIS [None]
  - HEPATIC STEATOSIS [None]
